FAERS Safety Report 6839310-7 (Version None)
Quarter: 2010Q3

REPORT INFORMATION
  Report Type: 
  Country: None (occurrence: None)
  Receive Date: 20100714
  Receipt Date: 20100630
  Transmission Date: 20110219
  Serious: Yes (Hospitalization, Other)
  Sender: FDA-Public Use
  Company Number: PHHY2010IT39202

PATIENT
  Sex: Male

DRUGS (4)
  1. EXJADE [Suspect]
     Indication: MYELODYSPLASTIC SYNDROME
     Dosage: 21/MG/KG/DAY/ DAILY DOSE OF 2000 MG
     Route: 048
     Dates: start: 20100120, end: 20100415
  2. OMEPRAZOLE [Concomitant]
     Dosage: 20 MG
     Route: 048
     Dates: start: 20091201
  3. ALLOPURINOL [Concomitant]
     Dosage: 300 MG
     Route: 048
     Dates: start: 20091201
  4. EPOETIN BETA [Concomitant]
     Dosage: 30000 IU
     Route: 058
     Dates: start: 20091201

REACTIONS (6)
  - EROSIVE OESOPHAGITIS [None]
  - GASTRIC ULCER [None]
  - GASTRITIS EROSIVE [None]
  - HAEMOGLOBIN DECREASED [None]
  - HAEMOSTASIS [None]
  - MELAENA [None]
